FAERS Safety Report 10470909 (Version 2)
Quarter: 2014Q3

REPORT INFORMATION
  Report Type: Report from Study
  Country: GB (occurrence: GB)
  Receive Date: 20140923
  Receipt Date: 20140927
  Transmission Date: 20150326
  Serious: Yes (Other)
  Sender: FDA-Public Use
  Company Number: PHHY2014GB119241

PATIENT
  Age: 52 Year
  Sex: Female

DRUGS (13)
  1. HERCEPTIN [Suspect]
     Active Substance: TRASTUZUMAB
     Dosage: 8 MG/KG, TIW, DATE OF LAST DOSE PRIOR TO SAE 04 JUL 2014 MAINTAINANCE DOSE
     Route: 042
     Dates: start: 20131107
  2. FUCIBET [Concomitant]
     Route: 061
     Dates: start: 20140203
  3. DOCETAXEL [Suspect]
     Active Substance: DOCETAXEL
     Indication: BREAST CANCER
     Dosage: 130 MG, TIW, DATE OF LAST DOSE PRIOR TO SAE 28 FEB 2014
     Route: 042
     Dates: start: 20131108
  4. HERCEPTIN [Suspect]
     Active Substance: TRASTUZUMAB
     Indication: BREAST CANCER
     Dosage: 357 MG, TIW, DATE OF LAST DOSE PRIOR TO SAE 04 JUL 2014 MAINTAINANCE DOSE
     Route: 042
     Dates: start: 20131128
  5. CALCIUM CHLORIDE. [Concomitant]
     Active Substance: CALCIUM CHLORIDE
     Route: 065
     Dates: start: 20131117, end: 20131117
  6. FRUSEMIDE [Concomitant]
     Active Substance: FUROSEMIDE
     Dosage: 20 MG, QD
     Route: 065
     Dates: start: 20140409
  7. NITROFURANTOIN. [Concomitant]
     Active Substance: NITROFURANTOIN
     Dosage: 200 MG, UNK
     Route: 065
     Dates: start: 20140326, end: 20140402
  8. PERTUZUMAB [Suspect]
     Active Substance: PERTUZUMAB
     Indication: BREAST CANCER
     Dosage: 840 MG, TIW, DATE OF LAST DOSE PRIOR TO SAE 04 JUL 2014 LOADING DOSE
     Route: 042
     Dates: start: 20131107
  9. CO-AMOXICLAV [Concomitant]
     Active Substance: AMOXICILLIN\CLAVULANIC ACID
     Dosage: 1875 MG, UNK
     Route: 065
     Dates: start: 20131118, end: 20131123
  10. LOPERAMIDE [Concomitant]
     Active Substance: LOPERAMIDE
     Dosage: 2 MG, UNK
     Route: 065
     Dates: start: 20131114, end: 20140903
  11. PERTUZUMAB [Suspect]
     Active Substance: PERTUZUMAB
     Dosage: 420 MG, TIW, DATE OF LAST DOSE PRIOR TO SAE 04 JUL 2014 MAINTAINANCE DOSE
     Route: 042
     Dates: start: 20131128
  12. CLARITHROMYCIN. [Concomitant]
     Active Substance: CLARITHROMYCIN
     Dosage: 1000 MG, UNK
     Route: 065
     Dates: start: 20131118, end: 20131123
  13. CYCLIZINE [Concomitant]
     Active Substance: CYCLIZINE
     Dosage: 150 MG, UNK
     Route: 065
     Dates: start: 20131107, end: 20131204

REACTIONS (1)
  - Ejection fraction decreased [Recovering/Resolving]

NARRATIVE: CASE EVENT DATE: 20140718
